FAERS Safety Report 4897591-3 (Version None)
Quarter: 2006Q1

REPORT INFORMATION
  Report Type: 
  Country: None (occurrence: None)
  Receive Date: 20060130
  Receipt Date: 20060130
  Transmission Date: 20060701
  Serious: Yes (Hospitalization)
  Sender: FDA-Public Use
  Company Number: None

PATIENT
  Age: 63 Year
  Sex: Male
  Weight: 95.5 kg

DRUGS (3)
  1. WARFARIN SODIUM [Suspect]
     Indication: ANTIPHOSPHOLIPID ANTIBODIES POSITIVE
     Dosage: 1 MG MF 2MG STWTHSA
  2. WARFARIN SODIUM [Suspect]
     Indication: DEEP VEIN THROMBOSIS
     Dosage: 1 MG MF 2MG STWTHSA
  3. WARFARIN SODIUM [Suspect]
     Indication: PULMONARY EMBOLISM
     Dosage: 1 MG MF 2MG STWTHSA

REACTIONS (1)
  - EPISTAXIS [None]
